FAERS Safety Report 25732062 (Version 1)
Quarter: 2025Q3

REPORT INFORMATION
  Report Type: Report from Study
  Country: US (occurrence: US)
  Receive Date: 20250827
  Receipt Date: 20250827
  Transmission Date: 20251020
  Serious: Yes (Other)
  Sender: GRIFOLS
  Company Number: US-IGSA-BIG0037347

PATIENT
  Age: 65 Year
  Sex: Female
  Weight: 65.3 kg

DRUGS (21)
  1. PROLASTIN-C LIQUID [Suspect]
     Active Substance: .ALPHA.1-PROTEINASE INHIBITOR HUMAN
     Indication: Alpha-1 antitrypsin deficiency
     Dosage: 4056 MILLIGRAM, Q.WK.
     Route: 042
  2. CEPHALEXIN [Concomitant]
     Active Substance: CEPHALEXIN
  3. ALBUTEROL\IPRATROPIUM [Concomitant]
     Active Substance: ALBUTEROL\IPRATROPIUM
  4. SINGULAIR [Concomitant]
     Active Substance: MONTELUKAST SODIUM
  5. PREDNISONE [Concomitant]
     Active Substance: PREDNISONE
  6. AZELASTINE HYDROCHLORIDE [Concomitant]
     Active Substance: AZELASTINE HYDROCHLORIDE
  7. NASACORT [Concomitant]
     Active Substance: TRIAMCINOLONE ACETONIDE
  8. EPINEPHRINE [Concomitant]
     Active Substance: EPINEPHRINE
  9. BENZONATATE [Concomitant]
     Active Substance: BENZONATATE
  10. PROAIR RESPICLICK [Concomitant]
     Active Substance: ALBUTEROL SULFATE
  11. PRILOSEC OTC [Concomitant]
     Active Substance: OMEPRAZOLE MAGNESIUM
  12. VITAMINS [Concomitant]
     Active Substance: VITAMINS
  13. OXYGEN [Concomitant]
     Active Substance: OXYGEN
  14. TRELEGY ELLIPTA [Concomitant]
     Active Substance: FLUTICASONE FUROATE\UMECLIDINIUM BROMIDE\VILANTEROL TRIFENATATE
  15. ACETAMINOPHEN [Concomitant]
     Active Substance: ACETAMINOPHEN
  16. DIPHENHYDRAMINE HYDROCHLORIDE [Concomitant]
     Active Substance: DIPHENHYDRAMINE HYDROCHLORIDE
  17. HERBALS\TURMERIC [Concomitant]
     Active Substance: HERBALS\TURMERIC
  18. CULTURELLE DIGESTIVE DAILY PROBIOTIC CHEWABLES [Concomitant]
  19. VITAMIN D3 [Concomitant]
     Active Substance: CHOLECALCIFEROL
  20. ZINC [Concomitant]
     Active Substance: ZINC
  21. ALBUTEROL SULFATE [Concomitant]
     Active Substance: ALBUTEROL SULFATE

REACTIONS (1)
  - Toothache [Unknown]

NARRATIVE: CASE EVENT DATE: 20250807
